FAERS Safety Report 19777114 (Version 3)
Quarter: 2025Q4

REPORT INFORMATION
  Report Type: Spontaneous
  Country: US (occurrence: US)
  Receive Date: 20210901
  Receipt Date: 20251219
  Transmission Date: 20260117
  Serious: Yes (Hospitalization, Other)
  Sender: COOPERSURGICAL
  Company Number: US-COOPERSURGICAL, INC.-US-2021CPS002484

PATIENT
  Sex: Female
  Weight: 54.422 kg

DRUGS (3)
  1. PARAGARD T 380A [Suspect]
     Active Substance: COPPER
     Indication: Product used for unknown indication
     Dosage: UNK
     Route: 015
     Dates: start: 20090804
  2. PREDNISONE [Concomitant]
     Active Substance: PREDNISONE
     Indication: Colitis
     Dosage: UNK, UNK
     Route: 065
     Dates: start: 201002, end: 201102
  3. ASACOL [Concomitant]
     Active Substance: MESALAMINE
     Indication: Product used for unknown indication
     Dosage: UNK, UNK
     Route: 065
     Dates: start: 201002, end: 201102

REACTIONS (22)
  - Colitis [Unknown]
  - Uterine leiomyoma [Unknown]
  - Uterine polyp [Unknown]
  - Device breakage [Not Recovered/Not Resolved]
  - Complication of device removal [Not Recovered/Not Resolved]
  - Foreign body in reproductive tract [Not Recovered/Not Resolved]
  - Embedded device [Not Recovered/Not Resolved]
  - Emotional distress [Unknown]
  - Anxiety [Unknown]
  - Depression [Unknown]
  - Skin lesion [Unknown]
  - Arthralgia [Unknown]
  - Breast tenderness [Unknown]
  - Device use issue [Unknown]
  - Pain [Recovered/Resolved]
  - Device dislocation [Recovered/Resolved]
  - Bacterial vaginosis [Unknown]
  - Menstruation irregular [Unknown]
  - Heavy menstrual bleeding [Unknown]
  - Dysmenorrhoea [Unknown]
  - Vaginal infection [Unknown]
  - Pain [None]

NARRATIVE: CASE EVENT DATE: 20090101
